FAERS Safety Report 7415359-0 (Version None)
Quarter: 2011Q2

REPORT INFORMATION
  Report Type: 
  Country: None (occurrence: None)
  Receive Date: 20110414
  Receipt Date: 20110406
  Transmission Date: 20111010
  Serious: Yes (Hospitalization)
  Sender: FDA-Public Use
  Company Number: A0921681A

PATIENT
  Age: 18 Year
  Sex: Female

DRUGS (3)
  1. AZITHROMYCIN [Concomitant]
  2. QVAR 40 [Concomitant]
  3. LAMICTAL [Suspect]
     Dosage: 200MG TWICE PER DAY
     Route: 048
     Dates: start: 20100401, end: 20110401

REACTIONS (4)
  - FATIGUE [None]
  - APLASIA PURE RED CELL [None]
  - PALLOR [None]
  - HAEMOGLOBIN ABNORMAL [None]
